FAERS Safety Report 18672517 (Version 1)
Quarter: 2020Q4

REPORT INFORMATION
  Report Type: Spontaneous
  Country: JP (occurrence: JP)
  Receive Date: 20201228
  Receipt Date: 20201228
  Transmission Date: 20210114
  Serious: Yes (Hospitalization, Other)
  Sender: FDA-Public Use
  Company Number: JP-JNJFOC-A-CH2017-154371

PATIENT
  Age: 25 Year
  Sex: Female
  Weight: 45.7 kg

DRUGS (18)
  1. EPOPROSTENOL ACT [Suspect]
     Active Substance: EPOPROSTENOL
     Indication: PULMONARY ARTERIAL HYPERTENSION
     Dosage: UNK
     Route: 042
     Dates: start: 201506
  2. EPOPROSTENOL ACT [Suspect]
     Active Substance: EPOPROSTENOL
     Dosage: 24 NG/KG, PER MIN
     Route: 042
     Dates: start: 20150811, end: 20171108
  3. OPSUMIT [Suspect]
     Active Substance: MACITENTAN
     Indication: PRODUCT USED FOR UNKNOWN INDICATION
     Dosage: UNK
     Route: 048
     Dates: start: 20170621, end: 20180628
  4. THIURAGYL [Suspect]
     Active Substance: PROPYLTHIOURACIL
     Indication: BASEDOW^S DISEASE
     Dosage: 100MGX1 TIME,50MGX1 TIME
     Route: 048
     Dates: start: 201508, end: 201705
  5. SODIUM FERRIC CITRATE [Concomitant]
     Active Substance: FERRIC SODIUM CITRATE
     Indication: IRON DEFICIENCY ANAEMIA
     Route: 048
  6. NEXIUM [Concomitant]
     Active Substance: ESOMEPRAZOLE MAGNESIUM
     Indication: GASTROOESOPHAGEAL REFLUX DISEASE
     Route: 048
     Dates: start: 20170601, end: 20170814
  7. EPOPROSTENOL ACT [Suspect]
     Active Substance: EPOPROSTENOL
     Route: 042
     Dates: start: 201802
  8. CEFAZOLIN SODIUM. [Concomitant]
     Active Substance: CEFAZOLIN SODIUM
     Indication: SOFT TISSUE INFECTION
     Dates: start: 20170808, end: 20170816
  9. TRACLEER [Suspect]
     Active Substance: BOSENTAN
     Indication: PULMONARY ARTERIAL HYPERTENSION
     Route: 048
     Dates: start: 201405, end: 20170620
  10. POLAPREZINC [Concomitant]
     Active Substance: POLAPREZINC
     Indication: ZINC DEFICIENCY
     Route: 048
     Dates: start: 20170517
  11. OPSUMIT [Suspect]
     Active Substance: MACITENTAN
     Dosage: UNK
     Route: 048
  12. BERAPROST SODIUM [Concomitant]
     Active Substance: BERAPROST SODIUM
     Route: 048
  13. MERCAZOLE [Concomitant]
     Active Substance: CARBIMAZOLE
     Indication: BASEDOW^S DISEASE
     Dosage: UNK
     Route: 048
     Dates: start: 20170512, end: 20180521
  14. ADCIRCA [Concomitant]
     Active Substance: TADALAFIL
     Indication: PULMONARY ARTERIAL HYPERTENSION
     Route: 048
     Dates: start: 201406
  15. PREDONINE [Concomitant]
     Active Substance: PREDNISOLONE
     Indication: THROMBOCYTOPENIA
     Dates: start: 20170601, end: 20170706
  16. FOLIAMIN [FOLIC ACID] [Concomitant]
     Indication: FOLATE DEFICIENCY
     Dates: start: 20170512
  17. EPOPROSTENOL ACT [Suspect]
     Active Substance: EPOPROSTENOL
     Dosage: 66.8 NG/KG, CONT INFUS
     Route: 042
     Dates: start: 201612
  18. BISOPROLOL [Concomitant]
     Active Substance: BISOPROLOL
     Indication: BASEDOW^S DISEASE
     Dates: start: 201507, end: 20170624

REACTIONS (13)
  - Hepatic function abnormal [Recovered/Resolved]
  - Hyperthyroidism [Unknown]
  - Platelet count decreased [Not Recovered/Not Resolved]
  - Device related infection [Unknown]
  - Blood bilirubin increased [Recovered/Resolved]
  - Nausea [Unknown]
  - Hyperbilirubinaemia [Unknown]
  - Platelet transfusion [Unknown]
  - Urticaria chronic [Not Recovered/Not Resolved]
  - Pain in extremity [Unknown]
  - Brain natriuretic peptide increased [Recovered/Resolved]
  - Decreased appetite [Unknown]
  - Jaundice [Recovered/Resolved]

NARRATIVE: CASE EVENT DATE: 2015
